FAERS Safety Report 25941210 (Version 1)
Quarter: 2025Q4

REPORT INFORMATION
  Report Type: Spontaneous
  Country: US (occurrence: None)
  Receive Date: 20251019
  Receipt Date: 20251019
  Transmission Date: 20260118
  Serious: Yes (Other)
  Sender: FDA-CTU
  Company Number: None

PATIENT
  Age: 58 Year
  Sex: Female
  Weight: 51.75 kg

DRUGS (1)
  1. SKYRIZI [Suspect]
     Active Substance: RISANKIZUMAB-RZAA
     Indication: Crohn^s disease
     Dosage: OTHER FREQUENCY : ONE MONTH;?
     Route: 042
     Dates: start: 20250731, end: 20251019

REACTIONS (4)
  - Sinusitis [None]
  - Headache [None]
  - Infection [None]
  - Infusion related reaction [None]

NARRATIVE: CASE EVENT DATE: 20250807
